FAERS Safety Report 6530724-1 (Version None)
Quarter: 2010Q1

REPORT INFORMATION
  Report Type: 
  Country: None (occurrence: None)
  Receive Date: 20100108
  Receipt Date: 20081217
  Transmission Date: 20100710
  Serious: No
  Sender: FDA-Public Use
  Company Number: A0760911A

PATIENT

DRUGS (2)
  1. LOVAZA [Suspect]
     Route: 048
  2. UNKNOWN [Concomitant]

REACTIONS (2)
  - BLOOD TRIGLYCERIDES INCREASED [None]
  - HIGH DENSITY LIPOPROTEIN DECREASED [None]
